FAERS Safety Report 18822750 (Version 1)
Quarter: 2021Q1

REPORT INFORMATION
  Report Type: Spontaneous
  Country: US (occurrence: US)
  Receive Date: 20210202
  Receipt Date: 20210202
  Transmission Date: 20210419
  Serious: No
  Sender: FDA-Public Use
  Company Number: US-PAIPHARMA-2020-US-015313

PATIENT
  Age: 51 Year
  Sex: Female
  Weight: 68.04 kg

DRUGS (1)
  1. NYSTATIN ORAL SUSPENSION USP [Suspect]
     Active Substance: NYSTATIN
     Indication: ORAL CANDIDIASIS
     Dosage: THREE TO FOUR TIMES DAILY
     Route: 048
     Dates: start: 20200627, end: 20200727

REACTIONS (2)
  - Drug ineffective [Recovered/Resolved]
  - Coating in mouth [Recovered/Resolved]

NARRATIVE: CASE EVENT DATE: 20200627
